FAERS Safety Report 9259108 (Version 1)
Quarter: 2013Q2

REPORT INFORMATION
  Report Type: Spontaneous
  Country: US (occurrence: US)
  Receive Date: 20130426
  Receipt Date: 20130426
  Transmission Date: 20140414
  Serious: Yes (Hospitalization)
  Sender: FDA-Public Use
  Company Number: 2013SP000791

PATIENT
  Age: 21 Year
  Sex: Female

DRUGS (1)
  1. LATUDA [Suspect]
     Indication: SCHIZOAFFECTIVE DISORDER
     Route: 048
     Dates: start: 20130314, end: 2013

REACTIONS (4)
  - Psychotic disorder [Recovered/Resolved]
  - Drug ineffective for unapproved indication [None]
  - Schizoaffective disorder [Unknown]
  - Pregnancy [None]
